FAERS Safety Report 4758632-7 (Version None)
Quarter: 2005Q3

REPORT INFORMATION
  Report Type: 
  Country: None (occurrence: None)
  Receive Date: 20050826
  Receipt Date: 20050815
  Transmission Date: 20060218
  Serious: Yes (Other)
  Sender: FDA-Public Use
  Company Number: 2005116318

PATIENT
  Age: 73 Year
  Sex: Male
  Weight: 80 kg

DRUGS (5)
  1. SORTIS (ATORVASTATIN) [Suspect]
     Indication: HYPERLIPIDAEMIA
     Dosage: 10 MG (10 MG, 1 IN 1 D), ORAL
     Route: 048
     Dates: start: 20000920, end: 20010927
  2. NIFEDIPINE [Concomitant]
  3. ACETYLSALICYLIC ACID SRT [Concomitant]
  4. METOPROLOL TARTRATE [Concomitant]
  5. ENALAPRIL MALEATE [Concomitant]

REACTIONS (1)
  - TENDON RUPTURE [None]
